FAERS Safety Report 13681370 (Version 1)
Quarter: 2017Q2

REPORT INFORMATION
  Report Type: Spontaneous
  Country: US (occurrence: US)
  Receive Date: 20170622
  Receipt Date: 20170622
  Transmission Date: 20170830
  Serious: Yes (Other)
  Sender: FDA-Public Use
  Company Number: None

PATIENT
  Age: 39 Year
  Sex: Female

DRUGS (1)
  1. LEVOTHYROXINE 100 MCG [Suspect]
     Active Substance: LEVOTHYROXINE
     Indication: THYROID DISORDER
     Route: 048
     Dates: start: 20170612, end: 20170622

REACTIONS (2)
  - Feeling jittery [None]
  - Palpitations [None]

NARRATIVE: CASE EVENT DATE: 20170622
